FAERS Safety Report 17768537 (Version 3)
Quarter: 2020Q3

REPORT INFORMATION
  Report Type: Spontaneous
  Country: DE (occurrence: DE)
  Receive Date: 20200512
  Receipt Date: 20200918
  Transmission Date: 20201102
  Serious: Yes (Death, Life-Threatening, Hospitalization, Other)
  Sender: FDA-Public Use
  Company Number: DE-SUN PHARMACEUTICAL INDUSTRIES LTD-2020RR-243560

PATIENT
  Sex: Female
  Weight: 52 kg

DRUGS (43)
  1. FLUVASTATIN [Suspect]
     Active Substance: FLUVASTATIN SODIUM
     Dosage: UNK UNK, QD 20 (0?0?1) ()
     Route: 065
  2. AZATHIOPRINE. [Suspect]
     Active Substance: AZATHIOPRINE
     Indication: WHITE BLOOD CELL COUNT DECREASED
     Dosage: 50 MG, UNK
     Route: 065
     Dates: start: 20100419, end: 201907
  3. LEVOTHYROXIN [Suspect]
     Active Substance: LEVOTHYROXINE
     Indication: SYSTEMIC LUPUS ERYTHEMATOSUS
     Dosage: UNK ()
     Route: 065
  4. SEVREDOL [Suspect]
     Active Substance: MORPHINE
     Indication: SYSTEMIC LUPUS ERYTHEMATOSUS
     Dosage: UNK, 20 TO S5X/D, ()
     Route: 065
  5. EZETROL [Concomitant]
     Active Substance: EZETIMIBE
     Dosage: UNK UNK, QD 10 (0?0?1) ()
     Route: 065
  6. ISDN [Concomitant]
     Dosage: UNK UNK, BID20 RET (1?1?0) ()
     Route: 065
  7. L?THYROX [Concomitant]
     Active Substance: LEVOTHYROXINE SODIUM
     Indication: PRODUCT USED FOR UNKNOWN INDICATION
     Dosage: UNK UNK, QD 50 (1?0?0) ()
     Route: 065
  8. AZATHIOPRINE. [Suspect]
     Active Substance: AZATHIOPRINE
     Dosage: UNK
     Route: 065
     Dates: start: 1997, end: 2008
  9. LEVOTHYROXIN [Suspect]
     Active Substance: LEVOTHYROXINE
     Dosage: UNK ()
     Route: 065
  10. ELIQUIS [Suspect]
     Active Substance: APIXABAN
     Route: 065
  11. DETRUSITOL [Suspect]
     Active Substance: TOLTERODINE TARTRATE
     Dosage: UNK ()
     Route: 065
  12. DETRUSITOL [Suspect]
     Active Substance: TOLTERODINE TARTRATE
     Dosage: UNK ()
     Route: 065
  13. PREDNISOLONE. [Suspect]
     Active Substance: PREDNISOLONE
     Indication: SYSTEMIC LUPUS ERYTHEMATOSUS
     Dosage: 5 MG, QD
     Route: 065
     Dates: start: 1988
  14. MOLSIDOMIN [Suspect]
     Active Substance: MOLSIDOMINE
     Dosage: UNK UNK, QD 8 RET (0?0?1) ()
     Route: 065
  15. AZATHIOPRINE. [Suspect]
     Active Substance: AZATHIOPRINE
     Indication: SYSTEMIC LUPUS ERYTHEMATOSUS
     Dosage: UNK
     Route: 065
     Dates: start: 201906, end: 201906
  16. MORPHIN [Concomitant]
     Active Substance: MORPHINE
     Indication: PRODUCT USED FOR UNKNOWN INDICATION
     Dosage: DAILY, UNK UNK, BID 30 RET (1?0?1) ()
     Route: 065
  17. ANORO [Concomitant]
     Active Substance: UMECLIDINIUM BROMIDE\VILANTEROL TRIFENATATE
     Dosage: UNK, 55/221 PUSH ()
     Route: 055
  18. DULOXETINE. [Concomitant]
     Active Substance: DULOXETINE
     Indication: PRODUCT USED FOR UNKNOWN INDICATION
     Dosage: UNK UNK, QD 30 (1?0?0) ()
     Route: 065
  19. DULOXETINE. [Concomitant]
     Active Substance: DULOXETINE
     Dosage: UNK UNK, QD 30 (1?0?0) ()
     Route: 065
  20. ACICLOVIR [Suspect]
     Active Substance: ACYCLOVIR
     Indication: SYSTEMIC LUPUS ERYTHEMATOSUS
     Dosage: 400 MG, TID
     Route: 065
  21. MOLSIDOMIN [Suspect]
     Active Substance: MOLSIDOMINE
     Indication: SYSTEMIC LUPUS ERYTHEMATOSUS
     Dosage: UNK UNK, QD 8 RET (0?0?1) ()
     Route: 065
  22. LEVOTHYROXIN [Suspect]
     Active Substance: LEVOTHYROXINE
     Dosage: UNK ()
     Route: 065
  23. ELIQUIS [Suspect]
     Active Substance: APIXABAN
     Indication: SYSTEMIC LUPUS ERYTHEMATOSUS
     Dosage: 2.5 MILLIGRAMS, UNK
     Route: 065
  24. SEVREDOL [Suspect]
     Active Substance: MORPHINE
     Dosage: UNK, 20 TO S5X/D, ()
     Route: 065
  25. PENTACARINAT [Suspect]
     Active Substance: PENTAMIDINE ISETHIONATE
     Indication: SYSTEMIC LUPUS ERYTHEMATOSUS
     Dosage: UNK ()
     Route: 055
     Dates: start: 201904
  26. QUENSYL [Concomitant]
     Active Substance: HYDROXYCHLOROQUINE
     Indication: PRODUCT USED FOR UNKNOWN INDICATION
     Dosage: 200 MILLIGRAM
     Route: 065
     Dates: start: 1994, end: 1997
  27. LAXATAN [Concomitant]
     Indication: PRODUCT USED FOR UNKNOWN INDICATION
     Dosage: UNK
     Route: 065
  28. SAB SIMPLEX [Concomitant]
     Indication: PRODUCT USED FOR UNKNOWN INDICATION
     Dosage: UNK, 30GTT TO 3X/D ()
     Route: 065
  29. VALSARTAN. [Suspect]
     Active Substance: VALSARTAN
     Indication: SYSTEMIC LUPUS ERYTHEMATOSUS
     Dosage: UNK UNK, BID 160 (1?0?1) ()
     Route: 065
  30. FLUVASTATIN [Suspect]
     Active Substance: FLUVASTATIN SODIUM
     Indication: SYSTEMIC LUPUS ERYTHEMATOSUS
     Dosage: UNK UNK, QD 20 (0?0?1) ()
     Route: 065
  31. BENLYSTA [Suspect]
     Active Substance: BELIMUMAB
     Indication: WHITE BLOOD CELL COUNT DECREASED
     Dosage: 200 MG, WE
     Route: 058
     Dates: start: 201806, end: 201807
  32. BENLYSTA [Suspect]
     Active Substance: BELIMUMAB
     Dosage: 10 MG/KG, WE
     Route: 058
     Dates: start: 201711, end: 201812
  33. DETRUSITOL [Suspect]
     Active Substance: TOLTERODINE TARTRATE
     Indication: SYSTEMIC LUPUS ERYTHEMATOSUS
     Dosage: UNK ()
     Route: 065
  34. QUENSYL [Concomitant]
     Active Substance: HYDROXYCHLOROQUINE
     Dosage: 200 MG, QD (0?0?1)
     Route: 065
     Dates: start: 2008
  35. DEKRISTOL [Concomitant]
     Active Substance: CHOLECALCIFEROL
     Indication: PRODUCT USED FOR UNKNOWN INDICATION
     Dosage: WEEKLY, UNK UNK, WE, 20000 ()
     Route: 065
  36. EZETROL [Concomitant]
     Active Substance: EZETIMIBE
     Indication: PRODUCT USED FOR UNKNOWN INDICATION
     Dosage: UNK UNK, QD 10 (0?0?1) ()
     Route: 065
  37. L?THYROX [Concomitant]
     Active Substance: LEVOTHYROXINE SODIUM
     Dosage: UNK UNK, QD 50 (1?0?0) ()
     Route: 065
  38. BENLYSTA [Suspect]
     Active Substance: BELIMUMAB
     Indication: SYSTEMIC LUPUS ERYTHEMATOSUS
     Dosage: 200 MILLIGRAM, WEEKLY
     Route: 058
     Dates: start: 201708, end: 201904
  39. MCP [Concomitant]
     Active Substance: METOCLOPRAMIDE HYDROCHLORIDE
     Indication: PRODUCT USED FOR UNKNOWN INDICATION
     Dosage: DAILY, UNK UNK, TID 10 ()
     Route: 065
  40. BAYOTENSIN [Concomitant]
     Active Substance: NITRENDIPINE
     Indication: PRODUCT USED FOR UNKNOWN INDICATION
     Dosage: UNK
     Route: 065
  41. ANORO [Concomitant]
     Active Substance: UMECLIDINIUM BROMIDE\VILANTEROL TRIFENATATE
     Indication: PRODUCT USED FOR UNKNOWN INDICATION
     Dosage: UNK, 55/221 PUSH ()
     Route: 055
  42. ISDN [Concomitant]
     Indication: PRODUCT USED FOR UNKNOWN INDICATION
     Dosage: UNK UNK, BID20 RET (1?1?0) ()
     Route: 065
  43. SAB SIMPLEX [Concomitant]
     Dosage: UNK, 30GTT TO 3X/D ()
     Route: 065

REACTIONS (31)
  - Urinary tract infection [Unknown]
  - Erysipelas [Unknown]
  - Systemic lupus erythematosus [Unknown]
  - Intentional product use issue [Fatal]
  - Off label use [Fatal]
  - Gastritis haemorrhagic [Unknown]
  - Fall [Unknown]
  - Hypertension [Unknown]
  - Gastrooesophageal reflux disease [Unknown]
  - Pleuritic pain [Unknown]
  - Hypothyroidism [Unknown]
  - Herpes simplex reactivation [Unknown]
  - Hyperlipidaemia [Unknown]
  - Peritonitis [Fatal]
  - Antinuclear antibody negative [Unknown]
  - Antiphospholipid syndrome [Unknown]
  - Coombs positive haemolytic anaemia [Unknown]
  - Complex regional pain syndrome [Unknown]
  - Leukopenia [Fatal]
  - Sepsis [Fatal]
  - Leukopenia [Unknown]
  - Skin disorder [Unknown]
  - Thrombocytopenia [Unknown]
  - Osteonecrosis [Unknown]
  - Drug hypersensitivity [Unknown]
  - Anxiety disorder [Unknown]
  - Pneumocystis jirovecii pneumonia [Fatal]
  - Lymphopenia [Fatal]
  - Colitis ulcerative [Unknown]
  - Depression [Unknown]
  - Pancreatitis acute [Unknown]

NARRATIVE: CASE EVENT DATE: 1990
